FAERS Safety Report 4801133-8 (Version None)
Quarter: 2005Q4

REPORT INFORMATION
  Report Type: 
  Country: None (occurrence: None)
  Receive Date: 20051017
  Receipt Date: 20051007
  Transmission Date: 20060501
  Serious: Yes (Other)
  Sender: FDA-Public Use
  Company Number: PHNU2005DE03415

PATIENT
  Sex: Male

DRUGS (2)
  1. DIOVAN [Suspect]
     Dates: end: 20050101
  2. DIOVAN HCT [Suspect]
     Dates: end: 20050101

REACTIONS (1)
  - TACHYARRHYTHMIA [None]
